FAERS Safety Report 21389412 (Version 1)
Quarter: 2022Q3

REPORT INFORMATION
  Report Type: Spontaneous
  Country: US (occurrence: US)
  Receive Date: 20220929
  Receipt Date: 20220929
  Transmission Date: 20221027
  Serious: No
  Sender: FDA-Public Use
  Company Number: US-RECORDATI RARE DISEASES INC.-2022002976

PATIENT
  Sex: Female

DRUGS (3)
  1. PANHEMATIN [Suspect]
     Active Substance: HEMIN
     Indication: Product used for unknown indication
     Dosage: UNK
     Route: 042
     Dates: start: 20220617
  2. PANHEMATIN [Suspect]
     Active Substance: HEMIN
     Dosage: UNK
     Route: 042
     Dates: start: 20220621
  3. PANHEMATIN [Suspect]
     Active Substance: HEMIN
     Dosage: UNK
     Route: 042
     Dates: start: 20220622

REACTIONS (2)
  - Pain in extremity [Unknown]
  - Phlebitis [Unknown]

NARRATIVE: CASE EVENT DATE: 20220622
